FAERS Safety Report 8401241-9 (Version None)
Quarter: 2012Q2

REPORT INFORMATION
  Report Type: 
  Country: None (occurrence: None)
  Receive Date: 20120525
  Receipt Date: 20120511
  Transmission Date: 20120825
  Serious: Yes (Death, Other)
  Sender: FDA-Public Use
  Company Number: US-2012-10622

PATIENT
  Age: 55 Year
  Sex: Female

DRUGS (7)
  1. CYCLOPHOSPHAMIDE [Suspect]
     Indication: STEM CELL TRANSPLANT
     Dosage: 60MG/KG,
     Dates: start: 20090901, end: 20090901
  2. LEVOFLOXACIN [Concomitant]
  3. CYCLOSPORINE [Concomitant]
  4. METHOTREXATE [Concomitant]
  5. BUSULFEX [Suspect]
     Indication: STEM CELL TRANSPLANT
     Dosage: 3.2 MG/KG,INTRAVENOUS
     Route: 042
     Dates: start: 20090901, end: 20090901
  6. ANTI-THYMOCYTE GLOBULIN NOS [Concomitant]
  7. FLUCONAZOLE [Concomitant]

REACTIONS (11)
  - THROMBOCYTOPENIA [None]
  - ZYGOMYCOSIS [None]
  - GENERAL PHYSICAL HEALTH DETERIORATION [None]
  - PLEURAL EFFUSION [None]
  - BACK PAIN [None]
  - PNEUMOTHORAX [None]
  - FEBRILE NEUTROPENIA [None]
  - LIVER INJURY [None]
  - MUSCULOSKELETAL PAIN [None]
  - LIVER FUNCTION TEST ABNORMAL [None]
  - LUNG NEOPLASM [None]
